FAERS Safety Report 17557863 (Version 1)
Quarter: 2020Q1

REPORT INFORMATION
  Report Type: Report from Study
  Country: None (occurrence: CO)
  Receive Date: 20200319
  Receipt Date: 20200319
  Transmission Date: 20200409
  Serious: Yes (Other)
  Sender: FDA-Public Use
  Company Number: CO-ABBVIE-20K-036-3291026-00

PATIENT
  Sex: Female

DRUGS (2)
  1. HUMIRA [Suspect]
     Active Substance: ADALIMUMAB
     Indication: PSORIATIC ARTHROPATHY
     Route: 058
  2. HUMIRA [Suspect]
     Active Substance: ADALIMUMAB
     Indication: PSORIATIC ARTHROPATHY
     Route: 058
     Dates: start: 20081111

REACTIONS (5)
  - Disability [Unknown]
  - Dyspnoea [Not Recovered/Not Resolved]
  - Aphonia [Unknown]
  - Diabetes mellitus [Unknown]
  - Influenza [Unknown]

NARRATIVE: CASE EVENT DATE: 2012
